FAERS Safety Report 9385202 (Version 1)
Quarter: 2013Q2

REPORT INFORMATION
  Report Type: Spontaneous
  Country: US (occurrence: None)
  Receive Date: 20130628
  Receipt Date: 20130628
  Transmission Date: 20140414
  Serious: Yes (Other)
  Sender: FDA-Public Use
  Company Number: AUR-APL-2013-05269

PATIENT
  Age: 56 Year
  Sex: Female

DRUGS (9)
  1. LISINOPRIL (LISINOPRIL) [Suspect]
     Indication: CARDIAC DISORDER
     Dosage: 20, 12.5 MG DAILY,ORAL?
     Route: 048
  2. ATENOLOL (ATENOLOL) [Suspect]
     Route: 048
  3. SYMBICORT [Suspect]
     Dosage: 80, 4.5 2 PUFFS BID, RESPIRATORY
     Route: 055
  4. MAGNESIUM OXIDE (MAGNESIUM OXIDE) [Concomitant]
  5. BAYER ASPIRIN CARDIO (ACETYLSALICYLIC ACID) [Concomitant]
  6. LASIX (FUROSEMIDE) [Concomitant]
  7. ISOSORBIDE (ISOSORBIDE) [Concomitant]
  8. KLOR0CON (POTASSIUM CHLORIDE) [Concomitant]
  9. PRAVASTATIN SODIUM (PREVASTATIN SODIUM) [Concomitant]

REACTIONS (3)
  - Myocardial infarction [None]
  - Intentional drug misuse [None]
  - Weight increased [None]
